FAERS Safety Report 6153373-6 (Version None)
Quarter: 2009Q2

REPORT INFORMATION
  Report Type: 
  Country: None (occurrence: None)
  Receive Date: 20090409
  Receipt Date: 20090409
  Transmission Date: 20091009
  Serious: No
  Sender: FDA-Public Use
  Company Number: None

PATIENT
  Age: 72 Year
  Sex: Female
  Weight: 61.2356 kg

DRUGS (1)
  1. MIRAPEX [Suspect]
     Indication: RESTLESS LEGS SYNDROME
     Dosage: 25 MG ONE AT BED TIME - BY MOUTH
     Route: 048
     Dates: start: 20050101, end: 20080101

REACTIONS (2)
  - BASAL CELL CARCINOMA [None]
  - HYPERTENSION [None]
